FAERS Safety Report 5003466-1 (Version None)
Quarter: 2006Q2

REPORT INFORMATION
  Report Type: 
  Country: None (occurrence: None)
  Receive Date: 20060516
  Receipt Date: 20060508
  Transmission Date: 20061013
  Serious: Yes (Other)
  Sender: FDA-Public Use
  Company Number: US-ABBOTT-06P-163-0332669-00

PATIENT
  Sex: Male
  Weight: 67.192 kg

DRUGS (4)
  1. HUMIRA [Suspect]
     Indication: ANKYLOSING SPONDYLITIS
     Route: 058
     Dates: start: 20050101
  2. HYDROCODONE [Concomitant]
     Indication: PAIN
     Dosage: 1-2 TABLETS
     Route: 048
  3. ERGOCALCIFEROL [Concomitant]
     Indication: VITAMIN SUPPLEMENTATION
     Route: 048
  4. FORTEO [Concomitant]
     Indication: BONE DISORDER
     Dosage: 1 INJECTION
     Route: 050
     Dates: start: 20040301

REACTIONS (2)
  - FALL [None]
  - WRIST FRACTURE [None]
